FAERS Safety Report 24629510 (Version 1)
Quarter: 2024Q4

REPORT INFORMATION
  Report Type: Spontaneous
  Country: NL (occurrence: NL)
  Receive Date: 20241118
  Receipt Date: 20241118
  Transmission Date: 20250115
  Serious: Yes (Hospitalization)
  Sender: TEVA
  Company Number: None

PATIENT
  Age: 37 Year
  Sex: Female
  Weight: 64.5 kg

DRUGS (4)
  1. SULFAMETHOXAZOLE\TRIMETHOPRIM [Suspect]
     Active Substance: SULFAMETHOXAZOLE\TRIMETHOPRIM
     Indication: Pyelonephritis
     Dosage: 2DD 1 PIECE, COTRIMOXAZOL 960 TABLET 160/800MG / BRAND NAME NOT SPECIFIED
     Route: 065
     Dates: start: 20240709, end: 20240719
  2. MOVICOLON [Concomitant]
     Active Substance: POLYETHYLENE GLYCOL 3350\POTASSIUM CHLORIDE\SODIUM BICARBONATE\SODIUM CHLORIDE
     Indication: Product used for unknown indication
     Dosage: MACROGOL/SALTS PDR V DRINK (MOVIC/MOLAX/GEN CITR) / MOVICOLON POWDER FOR DRINK IN SACHET
     Route: 065
  3. MEDROXYPROGESTERONE ACETATE [Concomitant]
     Active Substance: MEDROXYPROGESTERONE ACETATE
     Indication: Product used for unknown indication
     Dosage: DOSAGE: 150 MG/ML MEDROXYPROGESTERONE INJSUSP BRAND NAME NOT SPECIFIED
     Route: 065
  4. TRAMADOL [Concomitant]
     Active Substance: TRAMADOL
     Indication: Product used for unknown indication
     Dosage: MODIFIED-RELEASE CAPSULE, TRAMADOL MGA / BRAND NAME NOT SPECIFIED
     Route: 065

REACTIONS (2)
  - Febrile neutropenia [Recovered/Resolved]
  - Rash [Recovered/Resolved]
